FAERS Safety Report 7805180-3 (Version None)
Quarter: 2011Q4

REPORT INFORMATION
  Report Type: 
  Country: None (occurrence: None)
  Receive Date: 20111010
  Receipt Date: 20110930
  Transmission Date: 20120403
  Serious: Yes (Other)
  Sender: FDA-Public Use
  Company Number: PHHY2011GB87678

PATIENT
  Age: 53 Year

DRUGS (1)
  1. ITRACONAZOLE [Suspect]
     Indication: ASPERGILLOSIS
     Dosage: 200 MG, BID

REACTIONS (3)
  - POLYNEUROPATHY [None]
  - HYPOAESTHESIA [None]
  - FALL [None]
